FAERS Safety Report 7242183-4 (Version None)
Quarter: 2011Q1

REPORT INFORMATION
  Report Type: 
  Country: None (occurrence: None)
  Receive Date: 20110124
  Receipt Date: 20101025
  Transmission Date: 20110831
  Serious: Yes (Hospitalization, Other)
  Sender: FDA-Public Use
  Company Number: PHHY2010FR73648

PATIENT
  Sex: Female

DRUGS (7)
  1. ANAFRANIL [Suspect]
     Dosage: 50 MG, UNK
     Route: 048
     Dates: start: 20080101
  2. HYZAAR [Suspect]
     Indication: HYPERTENSION
     Route: 048
  3. AMLOR [Suspect]
     Dosage: 10 MG, UNK
  4. TEGRETOL [Suspect]
     Indication: EPILEPSY
     Dosage: 0.5 DF ONCE A DAY
  5. OMEPRAZOLE [Concomitant]
  6. CRESTOR [Concomitant]
     Indication: DYSLIPIDAEMIA
  7. EZETIMIBE [Concomitant]
     Indication: DYSLIPIDAEMIA
     Dosage: 187.8 MG, UNK
     Route: 048

REACTIONS (2)
  - ORTHOSTATIC HYPOTENSION [None]
  - MALAISE [None]
